FAERS Safety Report 17942174 (Version 1)
Quarter: 2020Q2

REPORT INFORMATION
  Report Type: Spontaneous
  Country: US (occurrence: US)
  Receive Date: 20200625
  Receipt Date: 20200625
  Transmission Date: 20200714
  Serious: Yes (Life-Threatening, Other)
  Sender: FDA-Public Use
  Company Number: None

PATIENT
  Age: 36 Year
  Sex: Female
  Weight: 63 kg

DRUGS (3)
  1. VITAFUSION WOMEN^S DIETARY MULTIVITAMIN SUPPLEMENT [Concomitant]
  2. ORILISSA [Suspect]
     Active Substance: ELAGOLIX SODIUM
     Indication: ENDOMETRIOSIS
     Dosage: ?          QUANTITY:1 TABLET(S);?
     Route: 048
     Dates: start: 20191113, end: 20200110
  3. IBUPROFEN 800MG TABLET [Concomitant]
     Active Substance: IBUPROFEN

REACTIONS (13)
  - Hot flush [None]
  - Fatigue [None]
  - Hypoaesthesia [None]
  - Bone pain [None]
  - Vaginal haemorrhage [None]
  - Back pain [None]
  - Nausea [None]
  - Insomnia [None]
  - Anxiety [None]
  - Bone disorder [None]
  - Headache [None]
  - Mood swings [None]
  - Feeling abnormal [None]

NARRATIVE: CASE EVENT DATE: 20200110
